FAERS Safety Report 13463860 (Version 1)
Quarter: 2017Q2

REPORT INFORMATION
  Report Type: Spontaneous
  Country: US (occurrence: US)
  Receive Date: 20170420
  Receipt Date: 20170420
  Transmission Date: 20170830
  Serious: Yes (Hospitalization, Other)
  Sender: FDA-Public Use
  Company Number: US-ROCHE-627869

PATIENT
  Age: 22 Year
  Sex: Male

DRUGS (5)
  1. ACCUTANE [Suspect]
     Active Substance: ISOTRETINOIN
     Indication: ACNE
     Route: 065
     Dates: start: 19990608, end: 19991027
  2. AMNESTEEM [Suspect]
     Active Substance: ISOTRETINOIN
     Indication: ACNE
     Route: 065
     Dates: start: 20040507, end: 20040731
  3. ACCUTANE [Suspect]
     Active Substance: ISOTRETINOIN
     Route: 065
  4. CLARAVIS [Suspect]
     Active Substance: ISOTRETINOIN
     Indication: ACNE
     Route: 065
     Dates: start: 20070712, end: 20071114
  5. ACCUTANE [Suspect]
     Active Substance: ISOTRETINOIN
     Route: 065
     Dates: start: 20040331, end: 200407

REACTIONS (4)
  - Inflammatory bowel disease [Unknown]
  - Dry skin [Unknown]
  - Lip dry [Unknown]
  - Colitis ulcerative [Unknown]

NARRATIVE: CASE EVENT DATE: 20040227
